FAERS Safety Report 14815147 (Version 1)
Quarter: 2018Q2

REPORT INFORMATION
  Report Type: Spontaneous
  Country: TR (occurrence: TR)
  Receive Date: 20180426
  Receipt Date: 20180426
  Transmission Date: 20180711
  Serious: Yes (Other)
  Sender: FDA-Public Use
  Company Number: TR-LANNETT COMPANY, INC.-TR-2018LAN000647

PATIENT
  Age: 45 Year
  Sex: Female

DRUGS (1)
  1. LEVETIRACETAM. [Suspect]
     Active Substance: LEVETIRACETAM
     Indication: EPILEPSY
     Dosage: 500 MG, TID (TABLETS)
     Route: 065

REACTIONS (2)
  - Hypogammaglobulinaemia [Unknown]
  - Bone marrow failure [Recovered/Resolved]
